FAERS Safety Report 24748098 (Version 1)
Quarter: 2024Q4

REPORT INFORMATION
  Report Type: Spontaneous
  Country: FO (occurrence: FO)
  Receive Date: 20241218
  Receipt Date: 20241218
  Transmission Date: 20250115
  Serious: Yes (Other)
  Sender: RANBAXY
  Company Number: FO-SUN PHARMACEUTICAL INDUSTRIES LTD-2024R1-485103

PATIENT
  Age: 47 Year
  Sex: Male

DRUGS (2)
  1. CINACALCET [Suspect]
     Active Substance: CINACALCET
     Indication: Hypercalcaemia
     Dosage: 30 MILLIGRAM, TID
     Route: 065
  2. SODIUM CHLORIDE [Suspect]
     Active Substance: SODIUM CHLORIDE
     Indication: Hypercalcaemia
     Dosage: UNK
     Route: 042

REACTIONS (1)
  - Drug ineffective [Unknown]
